FAERS Safety Report 9058503 (Version 1)
Quarter: 2013Q1

REPORT INFORMATION
  Report Type: Spontaneous
  Country: US (occurrence: US)
  Receive Date: 20130211
  Receipt Date: 20130211
  Transmission Date: 20140127
  Serious: No
  Sender: FDA-Public Use
  Company Number: US-009507513-1302USA003495

PATIENT
  Sex: Female

DRUGS (1)
  1. DR. SCHOLL^S MASSAGING GEL HEEL CUSHIONS [Suspect]
     Indication: PRODUCT USED FOR UNKNOWN INDICATION

REACTIONS (1)
  - Feeling abnormal [Unknown]
